FAERS Safety Report 8440172-5 (Version None)
Quarter: 2012Q2

REPORT INFORMATION
  Report Type: 
  Country: None (occurrence: None)
  Receive Date: 20120615
  Receipt Date: 20120605
  Transmission Date: 20120825
  Serious: Yes (Hospitalization)
  Sender: FDA-Public Use
  Company Number: FR-VERTEX PHARMACEUTICALS INC.-000000000000000873

PATIENT
  Age: 55 Year
  Sex: Male

DRUGS (2)
  1. BITHERAPY [Concomitant]
     Indication: HEPATITIS C
     Route: 065
  2. INCIVO [Suspect]
     Indication: HEPATITIS C
     Dosage: DOSAGE FORM: TABLET
     Route: 048

REACTIONS (3)
  - HEPATOCELLULAR INJURY [None]
  - PANCYTOPENIA [None]
  - JAUNDICE [None]
